FAERS Safety Report 19417656 (Version 1)
Quarter: 2021Q2

REPORT INFORMATION
  Report Type: Spontaneous
  Country: US (occurrence: US)
  Receive Date: 20210615
  Receipt Date: 20210615
  Transmission Date: 20210717
  Serious: Yes (Hospitalization)
  Sender: FDA-Public Use
  Company Number: None

PATIENT
  Sex: Male
  Weight: 24.1 kg

DRUGS (2)
  1. DEXAMETHASONE. [Suspect]
     Active Substance: DEXAMETHASONE
  2. VINCRISTINE SULFATE. [Concomitant]
     Active Substance: VINCRISTINE SULFATE

REACTIONS (11)
  - Abdominal distension [None]
  - Vomiting [None]
  - Intra-abdominal fluid collection [None]
  - Abdominal tenderness [None]
  - Gastrointestinal sounds abnormal [None]
  - Intestinal perforation [None]
  - Hepatocellular injury [None]
  - Ileus [None]
  - Gastrointestinal inflammation [None]
  - Hepatosplenomegaly [None]
  - Abdominal pain [None]

NARRATIVE: CASE EVENT DATE: 20210609
